FAERS Safety Report 8050497-3 (Version None)
Quarter: 2012Q1

REPORT INFORMATION
  Report Type: 
  Country: None (occurrence: None)
  Receive Date: 20120117
  Receipt Date: 20120113
  Transmission Date: 20120608
  Serious: Yes (Hospitalization, Other)
  Sender: FDA-Public Use
  Company Number: US-PFIZER INC-2012010948

PATIENT
  Sex: Female
  Weight: 90.7 kg

DRUGS (2)
  1. SAVELLA [Concomitant]
     Dosage: UNK, 2X/DAY
  2. PREMARIN [Suspect]
     Indication: HORMONE REPLACEMENT THERAPY
     Dosage: UNK, 1X/DAY
     Route: 048
     Dates: start: 20111101, end: 20111103

REACTIONS (5)
  - WHITE BLOOD CELL COUNT INCREASED [None]
  - PHARYNGEAL OEDEMA [None]
  - HYPERSENSITIVITY [None]
  - URTICARIA [None]
  - TRANSFUSION [None]
